FAERS Safety Report 8250524-4 (Version None)
Quarter: 2012Q2

REPORT INFORMATION
  Report Type: 
  Country: None (occurrence: None)
  Receive Date: 20120402
  Receipt Date: 20120322
  Transmission Date: 20120825
  Serious: Yes (Other)
  Sender: FDA-Public Use
  Company Number: US-ROCHE-793751

PATIENT
  Sex: Female

DRUGS (3)
  1. ACCUTANE [Suspect]
     Dates: start: 20020925, end: 20040504
  2. ACCUTANE [Suspect]
  3. ACCUTANE [Suspect]
     Indication: ACNE
     Route: 065

REACTIONS (3)
  - CROHN'S DISEASE [None]
  - IRRITABLE BOWEL SYNDROME [None]
  - INFLAMMATORY BOWEL DISEASE [None]
